FAERS Safety Report 8192281-6 (Version None)
Quarter: 2012Q1

REPORT INFORMATION
  Report Type: 
  Country: None (occurrence: None)
  Receive Date: 20120307
  Receipt Date: 20120228
  Transmission Date: 20120608
  Serious: Yes (Other)
  Sender: FDA-Public Use
  Company Number: JP-AMGEN-JPNCT2012014629

PATIENT
  Age: 55 Year
  Sex: Female

DRUGS (11)
  1. PANITUMUMAB [Suspect]
     Indication: COLORECTAL CANCER
     Dosage: 300 MG, Q2WK
     Route: 041
     Dates: start: 20110715
  2. IRINOTECAN HCL [Concomitant]
     Indication: COLORECTAL CANCER
     Route: 041
     Dates: start: 20110715
  3. KYTRIL [Concomitant]
     Dosage: 3 MG, UNK
     Route: 042
  4. FLUOROURACIL [Concomitant]
     Indication: COLORECTAL CANCER
     Route: 040
     Dates: start: 20110715
  5. FAMOTIDINE [Concomitant]
     Indication: PROPHYLAXIS
     Route: 048
     Dates: start: 20110715
  6. FLUOROURACIL [Concomitant]
     Route: 041
     Dates: start: 20110715
  7. DECADRON [Concomitant]
     Dosage: UNK UNK, UNK
     Route: 042
  8. ISOVORIN [Concomitant]
     Indication: COLORECTAL CANCER
     Route: 041
     Dates: start: 20110715
  9. MINOCYCLINE HCL [Concomitant]
     Indication: DERMATITIS ACNEIFORM
     Route: 048
     Dates: start: 20110715, end: 20110909
  10. CLARITHROMYCIN [Concomitant]
     Indication: DERMATITIS ACNEIFORM
     Route: 048
     Dates: start: 20110926
  11. EMEND [Concomitant]
     Indication: PROPHYLAXIS OF NAUSEA AND VOMITING
     Dosage: UNK
     Route: 048
     Dates: start: 20110715

REACTIONS (1)
  - INTERSTITIAL LUNG DISEASE [None]
